FAERS Safety Report 7817818-5 (Version None)
Quarter: 2011Q4

REPORT INFORMATION
  Report Type: 
  Country: None (occurrence: None)
  Receive Date: 20111017
  Receipt Date: 20111007
  Transmission Date: 20120403
  Serious: Yes (Hospitalization, Disabling)
  Sender: FDA-Public Use
  Company Number: JP-B.I. PHARMACEUTICALS,INC./RIDGEFIELD-2011-BP-20592NB

PATIENT
  Sex: Female

DRUGS (10)
  1. TENORMIN [Concomitant]
     Indication: ATRIAL FIBRILLATION
     Dosage: 25 MG
     Route: 048
     Dates: end: 20110820
  2. MAGMITT [Concomitant]
     Indication: CONSTIPATION
     Dosage: 1320 MG
     Route: 048
     Dates: start: 20101105, end: 20110820
  3. DIGOXIN [Concomitant]
     Indication: ATRIAL FIBRILLATION
     Dosage: 0.125 MG
     Route: 048
     Dates: end: 20110820
  4. FERROUS CITRATE [Concomitant]
     Indication: ANAEMIA
     Dosage: 50 MG
     Route: 048
     Dates: start: 20080313, end: 20110820
  5. ZOLPIDEM [Concomitant]
     Indication: INSOMNIA
     Dosage: 10 MG
     Route: 048
     Dates: start: 20101105, end: 20110820
  6. PRADAXA [Suspect]
     Indication: ATRIAL FIBRILLATION
     Dosage: 300 MG
     Route: 048
     Dates: start: 20110409, end: 20110820
  7. ALDACTONE [Concomitant]
     Indication: HYPERTENSION
     Dosage: 50 MG
     Route: 048
     Dates: end: 20110820
  8. EVAMYL [Concomitant]
     Indication: INSOMNIA
     Dosage: 1 MG
     Route: 048
     Dates: end: 20110820
  9. PURSENNID [Concomitant]
     Indication: CONSTIPATION
     Dosage: 24 MG
     Route: 048
     Dates: start: 20101201, end: 20110820
  10. GASMOTIN [Concomitant]
     Indication: GASTRITIS
     Dosage: 10 MG
     Route: 048
     Dates: start: 20110802, end: 20110820

REACTIONS (1)
  - CEREBRAL INFARCTION [None]
